FAERS Safety Report 15951774 (Version 5)
Quarter: 2020Q2

REPORT INFORMATION
  Report Type: Report from Study
  Country: JP (occurrence: JP)
  Receive Date: 20190211
  Receipt Date: 20200414
  Transmission Date: 20200713
  Serious: Yes (Other)
  Sender: FDA-Public Use
  Company Number: JP-INCYTE CORPORATION-2019IN001029

PATIENT

DRUGS (10)
  1. HYDREA [Suspect]
     Active Substance: HYDROXYUREA
     Dosage: 71 MG
     Route: 048
     Dates: start: 20180705, end: 20180823
  2. HYDREA [Suspect]
     Active Substance: HYDROXYUREA
     Dosage: 1000 MG, UNK
     Route: 048
     Dates: end: 20170116
  3. HYDREA [Suspect]
     Active Substance: HYDROXYUREA
     Dosage: 250 MG
     Route: 048
     Dates: start: 20170612, end: 20170618
  4. HYDREA [Suspect]
     Active Substance: HYDROXYUREA
     Indication: POLYCYTHAEMIA VERA
     Dosage: 500 MG
     Route: 048
     Dates: end: 20170108
  5. JAKAVI [Suspect]
     Active Substance: RUXOLITINIB
     Dosage: 15 MG, BID
     Route: 048
     Dates: start: 20181129
  6. JAKAVI [Suspect]
     Active Substance: RUXOLITINIB
     Indication: POLYCYTHAEMIA VERA
     Dosage: 10 MG, QD
     Route: 048
     Dates: start: 20170120, end: 20170125
  7. HYDREA [Suspect]
     Active Substance: HYDROXYUREA
     Dosage: 500 MG
     Route: 048
     Dates: start: 20170126, end: 20170202
  8. HYDREA [Suspect]
     Active Substance: HYDROXYUREA
     Dosage: 143 MG
     Route: 048
     Dates: start: 20170619, end: 20180704
  9. JAKAVI [Suspect]
     Active Substance: RUXOLITINIB
     Dosage: 20 MG, QD
     Route: 048
     Dates: start: 20170126, end: 20181128
  10. HYDREA [Suspect]
     Active Substance: HYDROXYUREA
     Dosage: 1500 MG
     Route: 048
     Dates: start: 20170117, end: 20170125

REACTIONS (2)
  - Bone marrow failure [Not Recovered/Not Resolved]
  - Myelofibrosis [Not Recovered/Not Resolved]

NARRATIVE: CASE EVENT DATE: 20170202
